FAERS Safety Report 5554941-2 (Version None)
Quarter: 2007Q4

REPORT INFORMATION
  Report Type: 
  Country: None (occurrence: None)
  Receive Date: 20071213
  Receipt Date: 20071203
  Transmission Date: 20080405
  Serious: Yes (Hospitalization)
  Sender: FDA-Public Use
  Company Number: FR-ASTRAZENECA-2007CG01725

PATIENT
  Age: 51 Year
  Sex: Female

DRUGS (3)
  1. INEXIUM [Suspect]
     Route: 048
     Dates: start: 20010101, end: 20060301
  2. PAROXETINE HCL [Suspect]
     Dates: end: 20060301
  3. NEURONTIN [Concomitant]

REACTIONS (2)
  - BRAIN OEDEMA [None]
  - HYPONATRAEMIA [None]
